FAERS Safety Report 17230408 (Version 1)
Quarter: 2020Q1

REPORT INFORMATION
  Report Type: Spontaneous
  Country: US (occurrence: US)
  Receive Date: 20200103
  Receipt Date: 20200103
  Transmission Date: 20200409
  Serious: No
  Sender: FDA-Public Use
  Company Number: US-PERRIGO-19US005069

PATIENT
  Age: 71 Year
  Sex: Female
  Weight: 68.03 kg

DRUGS (1)
  1. HYDROCORTISONE. [Suspect]
     Active Substance: HYDROCORTISONE
     Indication: GLOSSODYNIA
     Dosage: 1 APPLICATION, BID
     Route: 061
     Dates: start: 20190417

REACTIONS (1)
  - Incorrect route of product administration [Not Recovered/Not Resolved]

NARRATIVE: CASE EVENT DATE: 20190417
